FAERS Safety Report 4469924-3 (Version None)
Quarter: 2004Q4

REPORT INFORMATION
  Report Type: 
  Country: None (occurrence: None)
  Receive Date: 20041008
  Receipt Date: 20040813
  Transmission Date: 20050328
  Serious: Yes (Hospitalization, Disabling)
  Sender: FDA-Public Use
  Company Number: PHNU2004DE02857

PATIENT
  Age: 42 Year
  Sex: Female

DRUGS (3)
  1. VOLTAREN [Suspect]
     Indication: MYALGIA
     Dosage: 1 DF, QD
     Route: 030
     Dates: start: 19990514, end: 19990515
  2. ESTRADIOL [Suspect]
     Indication: BREAST HYPERPLASIA
     Dosage: 101 MG, ONCE/SINGLE
     Route: 030
     Dates: start: 19990512
  3. PROGESTERONE [Suspect]
     Indication: BREAST HYPERPLASIA
     Dosage: 2501 MG, ONCE/SINGLE
     Route: 030
     Dates: start: 19990512, end: 19990512

REACTIONS (7)
  - CELLULITIS [None]
  - COMA [None]
  - COMPARTMENT SYNDROME [None]
  - NECROTISING FASCIITIS STREPTOCOCCAL [None]
  - PAIN IN EXTREMITY [None]
  - STREPTOCOCCAL SEPSIS [None]
  - TOXIC SHOCK SYNDROME [None]
